FAERS Safety Report 9093798 (Version 1)
Quarter: 2013Q1

REPORT INFORMATION
  Report Type: Spontaneous
  Country: US (occurrence: None)
  Receive Date: 20130214
  Receipt Date: 20130214
  Transmission Date: 20140127
  Serious: No
  Sender: FDA-Public Use
  Company Number: None

PATIENT
  Age: 75 Year
  Sex: Female
  Weight: 80 kg

DRUGS (3)
  1. TOLVAPTAN (SAMSCA) 15 MG TAB OTSUKA [Suspect]
     Indication: HYPONATRAEMIA
     Dosage: 9/1/2012 (GIVEN @ 14 24) ONCE
     Route: 048
     Dates: start: 20120901
  2. LASIX [Suspect]
     Route: 048
     Dates: start: 20120831, end: 20120901
  3. DEMECLOCYCLINE [Concomitant]

REACTIONS (1)
  - No adverse event [None]
